FAERS Safety Report 9217998 (Version 2)
Quarter: 2014Q3

REPORT INFORMATION
  Report Type: Report from Study
  Country: US (occurrence: US)
  Receive Date: 20130408
  Receipt Date: 20140701
  Transmission Date: 20150326
  Serious: Yes (Life-Threatening, Hospitalization, Other)
  Sender: FDA-Public Use
  Company Number: US-ROCHE-796837

PATIENT
  Age: 73 Year
  Sex: Male
  Weight: 96.1 kg

DRUGS (3)
  1. ETOPOSIDE. [Suspect]
     Active Substance: ETOPOSIDE
     Indication: SMALL CELL LUNG CANCER
     Dosage: FREQUENCY: OVER 2 HOURS ON DAYS 1-3 (21 DAYS CYCLE)?LAST DOSE PRIOR TO SAE: 14/JUL/2011 (TOTAL DOSE:
     Route: 042
     Dates: start: 20110712
  2. VISMODEGIB [Suspect]
     Active Substance: VISMODEGIB
     Indication: SMALL CELL LUNG CANCER
     Dosage: TOTAL DOSE: 2400 MG, LAST DOSE: 27 JULY 2011
     Route: 048
  3. CISPLATIN. [Suspect]
     Active Substance: CISPLATIN
     Indication: SMALL CELL LUNG CANCER
     Dosage: FREQUENCY: OVER 2 HOURS ON DAY 1?LAST DOSE PRIOR TO SAE: 12/JUL/2011 (TOTAL DOSE: 204 MG)
     Route: 042
     Dates: start: 20110712

REACTIONS (6)
  - Blood alkaline phosphatase increased [Not Recovered/Not Resolved]
  - Hypotension [Not Recovered/Not Resolved]
  - Hypercalcaemia [Not Recovered/Not Resolved]
  - White blood cell count decreased [Not Recovered/Not Resolved]
  - Anaemia [Recovered/Resolved]
  - Febrile neutropenia [Not Recovered/Not Resolved]

NARRATIVE: CASE EVENT DATE: 20110727
